FAERS Safety Report 7472158-1 (Version None)
Quarter: 2011Q2

REPORT INFORMATION
  Report Type: 
  Country: None (occurrence: None)
  Receive Date: 20110511
  Receipt Date: 20110201
  Transmission Date: 20111010
  Serious: No
  Sender: FDA-Public Use
  Company Number: A0912129A

PATIENT
  Age: 72 Year
  Sex: Female

DRUGS (1)
  1. TYKERB [Suspect]
     Dosage: 1000MG PER DAY

REACTIONS (4)
  - FATIGUE [None]
  - RASH [None]
  - CONSTIPATION [None]
  - SKIN DISORDER [None]
